FAERS Safety Report 8343929-4 (Version None)
Quarter: 2012Q2

REPORT INFORMATION
  Report Type: 
  Country: None (occurrence: None)
  Receive Date: 20120503
  Receipt Date: 20120418
  Transmission Date: 20120825
  Serious: Yes (Hospitalization, Other)
  Sender: FDA-Public Use
  Company Number: CN-JNJFOC-20110911628

PATIENT
  Age: 39 Year
  Sex: Male

DRUGS (1)
  1. DECITABINE [Suspect]
     Indication: MYELODYSPLASTIC SYNDROME
     Dosage: 50 MG, 1 IN 1 DAY, INTRAVENOUS
     Route: 042
     Dates: start: 20110225, end: 20110928

REACTIONS (2)
  - BONE MARROW FAILURE [None]
  - INFECTION [None]
